FAERS Safety Report 16643325 (Version 1)
Quarter: 2019Q3

REPORT INFORMATION
  Report Type: Spontaneous
  Country: US (occurrence: US)
  Receive Date: 20190729
  Receipt Date: 20190729
  Transmission Date: 20191004
  Serious: Yes (Other)
  Sender: FDA-Public Use
  Company Number: US-JNJFOC-20190722717

PATIENT
  Sex: Male
  Weight: 140.74 kg

DRUGS (4)
  1. RISPERDAL [Suspect]
     Active Substance: RISPERIDONE
     Indication: BIPOLAR DISORDER
  2. RISPERDAL [Suspect]
     Active Substance: RISPERIDONE
     Indication: DEPRESSION
  3. RISPERDAL [Suspect]
     Active Substance: RISPERIDONE
     Indication: POST-TRAUMATIC STRESS DISORDER
     Route: 048
     Dates: start: 201610, end: 201701
  4. RISPERDAL [Suspect]
     Active Substance: RISPERIDONE
     Indication: MANIA

REACTIONS (5)
  - Nipple enlargement [Unknown]
  - Hyperaesthesia [Unknown]
  - Glucose tolerance impaired [Unknown]
  - Weight increased [Unknown]
  - Muscle atrophy [Unknown]
